FAERS Safety Report 16832861 (Version 9)
Quarter: 2020Q4

REPORT INFORMATION
  Report Type: Spontaneous
  Country: US (occurrence: US)
  Receive Date: 20190920
  Receipt Date: 20201014
  Transmission Date: 20210113
  Serious: Yes (Other)
  Sender: FDA-Public Use
  Company Number: US-GILEAD-2019-0428477

PATIENT
  Age: 62 Year
  Sex: Male
  Weight: 81.63 kg

DRUGS (23)
  1. ATRIPLA [Suspect]
     Active Substance: EFAVIRENZ\EMTRICITABINE\TENOFOVIR DISOPROXIL FUMARATE
     Indication: HIV INFECTION
     Dosage: UNK
     Route: 048
     Dates: start: 20151221, end: 201611
  2. NYSTATIN. [Concomitant]
     Active Substance: NYSTATIN
  3. TIVICAY [Concomitant]
     Active Substance: DOLUTEGRAVIR SODIUM
  4. LEVOFLOXACIN. [Concomitant]
     Active Substance: LEVOFLOXACIN
  5. SULFAMETHOXAZOLE AND TRIMETHOPRIM [Concomitant]
     Active Substance: SULFAMETHOXAZOLE\TRIMETHOPRIM
  6. LACTULOSE. [Concomitant]
     Active Substance: LACTULOSE
  7. TEMAZEPAM. [Concomitant]
     Active Substance: TEMAZEPAM
  8. IBUPROFEN. [Concomitant]
     Active Substance: IBUPROFEN
  9. CHLORDIAZEPOXIDE. [Concomitant]
     Active Substance: CHLORDIAZEPOXIDE
  10. ZOLPIDEM TARTATE [Concomitant]
     Active Substance: ZOLPIDEM TARTRATE
  11. AMLODIPINE BESYLATE. [Concomitant]
     Active Substance: AMLODIPINE BESYLATE
  12. DIAZEPAM. [Concomitant]
     Active Substance: DIAZEPAM
  13. HYDROCHLOROTHIAZIDE. [Concomitant]
     Active Substance: HYDROCHLOROTHIAZIDE
  14. DESCOVY [Concomitant]
     Active Substance: EMTRICITABINE\TENOFOVIR ALAFENAMIDE FUMARATE
     Indication: HIV INFECTION
     Dosage: UNK
  15. PREDNISONE. [Concomitant]
     Active Substance: PREDNISONE
  16. ATRIPLA [Suspect]
     Active Substance: EFAVIRENZ\EMTRICITABINE\TENOFOVIR DISOPROXIL FUMARATE
     Indication: ACQUIRED IMMUNODEFICIENCY SYNDROME
     Dosage: UNK
     Route: 048
     Dates: start: 2015
  17. LISINOPRIL. [Concomitant]
     Active Substance: LISINOPRIL
  18. VIAGRA [Concomitant]
     Active Substance: SILDENAFIL CITRATE
  19. PROMETHAZINE WITH CODEINE [Concomitant]
     Active Substance: CODEINE PHOSPHATE\PROMETHAZINE HYDROCHLORIDE
  20. METOCLOPRAMIDE. [Concomitant]
     Active Substance: METOCLOPRAMIDE
  21. DOCUSATE SODIUM. [Concomitant]
     Active Substance: DOCUSATE SODIUM
  22. LORAZEPAM. [Concomitant]
     Active Substance: LORAZEPAM
  23. FLUCONAZOLE. [Concomitant]
     Active Substance: FLUCONAZOLE

REACTIONS (13)
  - Pain [Not Recovered/Not Resolved]
  - Hypertension [Unknown]
  - Renal cell carcinoma [Unknown]
  - Stress [Not Recovered/Not Resolved]
  - Emotional distress [Not Recovered/Not Resolved]
  - Anxiety [Not Recovered/Not Resolved]
  - T-lymphocyte count decreased [Recovered/Resolved]
  - Chronic kidney disease [Unknown]
  - Renal failure [Unknown]
  - Renal cyst [Unknown]
  - Anhedonia [Not Recovered/Not Resolved]
  - Economic problem [Not Recovered/Not Resolved]
  - Depression [Not Recovered/Not Resolved]

NARRATIVE: CASE EVENT DATE: 20161012
